FAERS Safety Report 22066594 (Version 1)
Quarter: 2023Q1

REPORT INFORMATION
  Report Type: Spontaneous
  Country: CN (occurrence: CN)
  Receive Date: 20230306
  Receipt Date: 20230306
  Transmission Date: 20230418
  Serious: Yes (Other)
  Sender: FDA-Public Use
  Company Number: CN-PFIZER INC-PV202300040311

PATIENT
  Age: 64 Year
  Sex: Female
  Weight: 70 kg

DRUGS (4)
  1. INOTUZUMAB OZOGAMICIN [Suspect]
     Active Substance: INOTUZUMAB OZOGAMICIN
     Indication: Acute lymphocytic leukaemia
     Dosage: 1 MG, 1X/DAY
     Route: 041
     Dates: start: 20230206, end: 20230206
  2. OLVEREMBATINIB [Suspect]
     Active Substance: OLVEREMBATINIB
     Indication: Acute lymphocytic leukaemia
     Dosage: 40 MG
     Route: 048
     Dates: start: 20230203, end: 20230212
  3. OLVEREMBATINIB [Suspect]
     Active Substance: OLVEREMBATINIB
     Dosage: 40 MG
     Route: 048
     Dates: start: 20230217, end: 20230217
  4. SODIUM CHLORIDE [Concomitant]
     Active Substance: SODIUM CHLORIDE
     Indication: Vehicle solution use
     Dosage: 100 ML, 1X/DAY
     Route: 041
     Dates: start: 20230206, end: 20230206

REACTIONS (10)
  - Oedema [Recovering/Resolving]
  - Pyrexia [Recovering/Resolving]
  - Rash [Recovering/Resolving]
  - Infection [Recovering/Resolving]
  - Pain [Recovering/Resolving]
  - Abdominal distension [Recovering/Resolving]
  - Arthralgia [Unknown]
  - Joint stiffness [Unknown]
  - Procalcitonin decreased [Unknown]
  - Hyperhidrosis [Unknown]

NARRATIVE: CASE EVENT DATE: 20230208
